FAERS Safety Report 7265994-8 (Version None)
Quarter: 2011Q1

REPORT INFORMATION
  Report Type: 
  Country: None (occurrence: None)
  Receive Date: 20110131
  Receipt Date: 20110124
  Transmission Date: 20110831
  Serious: Yes (Hospitalization)
  Sender: FDA-Public Use
  Company Number: US-B.I. PHARMACEUTICALS,INC./RIDGEFIELD-2010-BP-13272BP

PATIENT
  Age: 72 Year
  Sex: Male
  Weight: 102.27 kg

DRUGS (2)
  1. PLAVIX [Suspect]
     Dates: start: 20101118
  2. PRADAXA [Suspect]
     Indication: ATRIAL FIBRILLATION
     Dosage: 300 MG
     Dates: start: 20101118, end: 20101123

REACTIONS (7)
  - HAEMATOCRIT DECREASED [None]
  - MELAENA [None]
  - OCCULT BLOOD POSITIVE [None]
  - GASTRITIS [None]
  - GASTRIC MUCOSAL LESION [None]
  - GASTROINTESTINAL HAEMORRHAGE [None]
  - HAEMOGLOBIN DECREASED [None]
